FAERS Safety Report 5757802-9 (Version None)
Quarter: 2008Q2

REPORT INFORMATION
  Report Type: 
  Country: None (occurrence: None)
  Receive Date: 20080529
  Receipt Date: 20080521
  Transmission Date: 20081010
  Serious: Yes (Other)
  Sender: FDA-Public Use
  Company Number: 2008SP009701

PATIENT
  Age: 18 Year
  Sex: Male
  Weight: 76 kg

DRUGS (4)
  1. CLARITIN [Suspect]
     Indication: HYPERKERATOSIS
     Dosage: 10 MG; ; PO
     Route: 048
     Dates: start: 20080416, end: 20080417
  2. UREPEARL [Concomitant]
  3. LIDOMEX [Concomitant]
  4. RINDERON-V [Concomitant]

REACTIONS (1)
  - CONVULSION [None]
